FAERS Safety Report 13272954 (Version 2)
Quarter: 2017Q1

REPORT INFORMATION
  Report Type: Spontaneous
  Country: GB (occurrence: GB)
  Receive Date: 20170227
  Receipt Date: 20170323
  Transmission Date: 20170428
  Serious: Yes (Other)
  Sender: FDA-Public Use
  Company Number: GB-PFIZER INC-2017083172

PATIENT
  Age: 15 Year
  Sex: Male

DRUGS (1)
  1. EPIPEN [Suspect]
     Active Substance: EPINEPHRINE
     Dosage: 0.3 MG, UNK (0.3 MG OF 1:1000 FROM AN EPIPEN)

REACTIONS (6)
  - Accidental exposure to product [Recovered/Resolved]
  - Injection site ischaemia [Recovered/Resolved]
  - Paraesthesia [Recovered/Resolved]
  - Injection site coldness [Recovered/Resolved]
  - Injection site pallor [Recovered/Resolved]
  - Pain [Recovered/Resolved]
